FAERS Safety Report 13410035 (Version 1)
Quarter: 2017Q2

REPORT INFORMATION
  Report Type: Spontaneous
  Country: US (occurrence: US)
  Receive Date: 20170406
  Receipt Date: 20170406
  Transmission Date: 20170830
  Serious: Yes (Other)
  Sender: FDA-Public Use
  Company Number: US-AMGEN-USASP2017050599

PATIENT
  Sex: Female

DRUGS (1)
  1. PROLIA [Suspect]
     Active Substance: DENOSUMAB
     Indication: OSTEOPOROSIS POSTMENOPAUSAL
     Dosage: 60 MG, UNK
     Route: 065
     Dates: start: 20170202

REACTIONS (18)
  - Arthropathy [Unknown]
  - Vascular pain [Unknown]
  - Abdominal discomfort [Unknown]
  - Back pain [Unknown]
  - Rash generalised [Recovered/Resolved]
  - Myalgia [Unknown]
  - Injection site pain [Unknown]
  - Headache [Recovered/Resolved]
  - Musculoskeletal pain [Recovered/Resolved]
  - Pain in extremity [Unknown]
  - Somnolence [Unknown]
  - Arthralgia [Unknown]
  - Nervousness [Unknown]
  - Joint swelling [Unknown]
  - Bone pain [Unknown]
  - Pain [Unknown]
  - Heart rate increased [Unknown]
  - Dizziness [Unknown]

NARRATIVE: CASE EVENT DATE: 20170203
